FAERS Safety Report 6873316-7 (Version None)
Quarter: 2010Q3

REPORT INFORMATION
  Report Type: 
  Country: None (occurrence: None)
  Receive Date: 20100723
  Receipt Date: 20090319
  Transmission Date: 20110219
  Serious: No
  Sender: FDA-Public Use
  Company Number: US-PFIZER INC-2008159340

PATIENT
  Sex: Female
  Weight: 38.555 kg

DRUGS (8)
  1. CHANTIX [Suspect]
     Indication: SMOKING CESSATION THERAPY
  2. SEROQUEL [Concomitant]
     Dosage: UNK
  3. DEPAKOTE [Concomitant]
     Dosage: UNK
  4. TEGRETOL [Concomitant]
     Dosage: UNK
  5. ABILIFY [Concomitant]
     Dosage: UNK
  6. VALIUM [Concomitant]
     Dosage: UNK
  7. AMBIEN [Concomitant]
     Dosage: UNK
  8. ALL OTHER THERAPEUTIC PRODUCTS [Concomitant]
     Dosage: UNK

REACTIONS (2)
  - NIGHTMARE [None]
  - VOMITING [None]
